FAERS Safety Report 9025127 (Version 1)
Quarter: 2013Q1

REPORT INFORMATION
  Report Type: Spontaneous
  Country: US (occurrence: US)
  Receive Date: 20130122
  Receipt Date: 20130122
  Transmission Date: 20140127
  Serious: No
  Sender: FDA-Public Use
  Company Number: US-B.I. PHARMACEUTICALS,INC./RIDGEFIELD-2013-BI-01048BP

PATIENT
  Age: 69 None
  Sex: Female
  Weight: 81 kg

DRUGS (2)
  1. SPIRIVA [Suspect]
     Indication: BRONCHITIS CHRONIC
     Dosage: 18 MCG
     Route: 055
     Dates: start: 2012
  2. SPIRIVA [Suspect]
     Route: 048
     Dates: start: 20130114, end: 20130114

REACTIONS (2)
  - Osteoarthritis [Not Recovered/Not Resolved]
  - Incorrect route of drug administration [Recovered/Resolved]
